FAERS Safety Report 8809133 (Version 2)
Quarter: 2012Q4

REPORT INFORMATION
  Report Type: 
  Country: CA (occurrence: CA)
  Receive Date: 20120926
  Receipt Date: 20121017
  Transmission Date: 20130627
  Serious: No
  Sender: FDA-Public Use
  Company Number: PHHY2012CA082981

PATIENT
  Sex: Male

DRUGS (1)
  1. LOSARTAN SANDOZ [Suspect]
     Indication: HYPERTENSION
     Dosage: 25 mg, UNK
     Route: 048
     Dates: start: 20120813

REACTIONS (2)
  - Gastrooesophageal reflux disease [Recovered/Resolved]
  - Dysphonia [Recovered/Resolved]
